FAERS Safety Report 5374203-6 (Version None)
Quarter: 2007Q2

REPORT INFORMATION
  Report Type: 
  Country: None (occurrence: None)
  Receive Date: 20070627
  Receipt Date: 20061024
  Transmission Date: 20071010
  Serious: Yes (Other)
  Sender: FDA-Public Use
  Company Number: 468799

PATIENT
  Age: 53 Year
  Sex: Female
  Weight: 77.1 kg

DRUGS (1)
  1. XELODA [Suspect]
     Indication: METASTATIC NEOPLASM
     Dosage: 1800 MG 2 PER DAY ORAL
     Route: 048
     Dates: start: 20060801

REACTIONS (1)
  - PALMAR-PLANTAR ERYTHRODYSAESTHESIA SYNDROME [None]
